FAERS Safety Report 5313502-0 (Version None)
Quarter: 2007Q2

REPORT INFORMATION
  Report Type: 
  Country: None (occurrence: None)
  Receive Date: 20070501
  Receipt Date: 20070424
  Transmission Date: 20071010
  Serious: Yes (Death)
  Sender: FDA-Public Use
  Company Number: CA-BAYER-200710607GDS

PATIENT
  Age: 63 Year
  Sex: Female

DRUGS (1)
  1. NEXAVAR [Suspect]
     Indication: METASTATIC RENAL CELL CARCINOMA
     Dosage: TOTAL DAILY DOSE: 800 MG
     Route: 048
     Dates: start: 20061204

REACTIONS (1)
  - DEATH [None]
